FAERS Safety Report 20943068 (Version 1)
Quarter: 2022Q2

REPORT INFORMATION
  Report Type: Spontaneous
  Country: TW (occurrence: TW)
  Receive Date: 20220610
  Receipt Date: 20220610
  Transmission Date: 20220721
  Serious: Yes (Death, Life-Threatening, Other)
  Sender: FDA-Public Use
  Company Number: TW-AMGEN-TWNSP2022095654

PATIENT

DRUGS (6)
  1. BEVACIZUMAB [Suspect]
     Active Substance: BEVACIZUMAB
     Indication: Hepatocellular carcinoma
     Dosage: UNK
     Route: 065
  2. NIVOLUMAB [Concomitant]
     Active Substance: NIVOLUMAB
  3. ATEZOLIZUMAB [Concomitant]
     Active Substance: ATEZOLIZUMAB
  4. SORAFENIB [Concomitant]
     Active Substance: SORAFENIB
  5. LENVATINIB [Concomitant]
     Active Substance: LENVATINIB
  6. REGORAFENIB [Concomitant]
     Active Substance: REGORAFENIB

REACTIONS (17)
  - Hepatitis [Fatal]
  - Dermatitis [Unknown]
  - Colitis [Unknown]
  - Gastrointestinal necrosis [Unknown]
  - Pneumonitis [Fatal]
  - Pyrexia [Unknown]
  - Palmar-plantar erythrodysaesthesia syndrome [Unknown]
  - Fatigue [Unknown]
  - Death [Fatal]
  - Hepatocellular carcinoma [Unknown]
  - Oedema [Unknown]
  - Adverse drug reaction [Unknown]
  - Dizziness [Unknown]
  - Therapy partial responder [Unknown]
  - Proteinuria [Unknown]
  - Myalgia [Unknown]
  - Off label use [Unknown]
